FAERS Safety Report 9725260 (Version 1)
Quarter: 2013Q4

REPORT INFORMATION
  Report Type: Spontaneous
  Country: US (occurrence: None)
  Receive Date: 20131129
  Receipt Date: 20131129
  Transmission Date: 20140711
  Serious: No
  Sender: FDA-Public Use
  Company Number: 2013-00147

PATIENT
  Age: 75 Year
  Sex: Male
  Weight: 71.67 kg

DRUGS (16)
  1. ZICAM COLD REMEDY RAPIDMELTS [Suspect]
     Indication: NASOPHARYNGITIS
     Dosage: 1 RAPID MELT ORALLY EVERY 3 HOURS
     Dates: start: 20131123, end: 20131125
  2. DILTIAZEM [Concomitant]
  3. TAMSULOSIN [Concomitant]
  4. FAMOTIDINE [Concomitant]
  5. ATORVASTATIN [Concomitant]
  6. FINASTERIDE [Concomitant]
  7. ZETIA [Concomitant]
  8. HYDROCHLOROTHIAZIDE [Concomitant]
  9. NIASPAN [Concomitant]
  10. MEGA RED [Concomitant]
  11. GLUCOSAMINE [Concomitant]
  12. UNSPECIFIED EYE VITAMIN [Concomitant]
  13. ASPIRIN [Concomitant]
  14. MULTIVITAMIN [Concomitant]
  15. ATIVAN [Concomitant]
  16. POLYETHYLENE GLYCOL [Concomitant]

REACTIONS (1)
  - Ageusia [None]
